FAERS Safety Report 20321714 (Version 1)
Quarter: 2022Q1

REPORT INFORMATION
  Report Type: Spontaneous
  Country: US (occurrence: None)
  Receive Date: 20220111
  Receipt Date: 20220111
  Transmission Date: 20220424
  Serious: Yes (Hospitalization)
  Sender: FDA-Public Use
  Company Number: None

PATIENT
  Sex: Female
  Weight: 9.8 kg

DRUGS (3)
  1. CYCLOPHOSPHAMIDE [Suspect]
     Active Substance: CYCLOPHOSPHAMIDE
     Dates: end: 20211129
  2. NEULASTA [Suspect]
     Active Substance: PEGFILGRASTIM
     Dates: end: 20211130
  3. TOPOTECAN [Suspect]
     Active Substance: TOPOTECAN HYDROCHLORIDE
     Dates: end: 20211128

REACTIONS (10)
  - Hypertension [None]
  - Inappropriate antidiuretic hormone secretion [None]
  - Renal ischaemia [None]
  - Blood sodium decreased [None]
  - Acute respiratory failure [None]
  - Gastrointestinal disorder [None]
  - Hypomagnesaemia [None]
  - Hypokalaemia [None]
  - Anaemia [None]
  - Thrombocytopenia [None]

NARRATIVE: CASE EVENT DATE: 20211121
